FAERS Safety Report 11077510 (Version 2)
Quarter: 2015Q2

REPORT INFORMATION
  Report Type: Spontaneous
  Country: US (occurrence: US)
  Receive Date: 20150430
  Receipt Date: 20150526
  Transmission Date: 20150821
  Serious: No
  Sender: FDA-Public Use
  Company Number: US-JNJFOC-20141111016

PATIENT
  Age: 14 Year
  Sex: Female
  Weight: 57 kg

DRUGS (3)
  1. VIACTIV CALCIUM CHEWS [Suspect]
     Active Substance: CALCIUM\VITAMIN D\VITAMIN K5
     Indication: MINERAL SUPPLEMENTATION
     Dosage: 1 SOFT CHOCOLATE CHEW ONCE AT NIGHT
     Route: 048
     Dates: start: 201410
  2. TYLENOL WITH CODEINE [Suspect]
     Active Substance: ACETAMINOPHEN\CODEINE PHOSPHATE
     Indication: PRODUCT USED FOR UNKNOWN INDICATION
     Dosage: 1 TABLET
     Route: 048
  3. VIACTIV CALCIUM CHEWS [Suspect]
     Active Substance: CALCIUM\VITAMIN D\VITAMIN K5
     Indication: MINERAL SUPPLEMENTATION
     Route: 048
     Dates: start: 201410, end: 201410

REACTIONS (1)
  - Abdominal pain upper [Recovered/Resolved]

NARRATIVE: CASE EVENT DATE: 201410
